FAERS Safety Report 19829931 (Version 1)
Quarter: 2021Q3

REPORT INFORMATION
  Report Type: Spontaneous
  Country: US (occurrence: US)
  Receive Date: 20210915
  Receipt Date: 20210915
  Transmission Date: 20211014
  Serious: No
  Sender: FDA-Public Use
  Company Number: NVSC2021US208692

PATIENT

DRUGS (1)
  1. VOLTAREN JOINT PAIN [Suspect]
     Active Substance: DICLOFENAC DIETHYLAMINE
     Indication: ARTHRITIS
     Route: 065

REACTIONS (1)
  - Drug effect less than expected [Unknown]
